FAERS Safety Report 8050435-3 (Version None)
Quarter: 2012Q1

REPORT INFORMATION
  Report Type: 
  Country: None (occurrence: None)
  Receive Date: 20120111
  Receipt Date: 20110624
  Transmission Date: 20120608
  Serious: Yes (Other)
  Sender: FDA-Public Use
  Company Number: 2011-02676

PATIENT
  Age: 17 Year
  Sex: Female

DRUGS (1)
  1. TUBERSOL 5 TU(TUBERCULIN PPD (M) 5 TU)SANOFI PASTEUR LTD.,587AA,D2 [Suspect]
     Indication: TUBERCULIN TEST
     Dosage: I.D.,FOREARM L
     Dates: start: 20110506, end: 20110506

REACTIONS (1)
  - CONVULSION [None]
